FAERS Safety Report 10111089 (Version 3)
Quarter: 2015Q1

REPORT INFORMATION
  Report Type: Spontaneous
  Country: US (occurrence: None)
  Receive Date: 20140421
  Receipt Date: 20150120
  Transmission Date: 20150720
  Serious: No
  Sender: FDA-Public Use
  Company Number: AEGR000322

PATIENT
  Age: 61 Year
  Sex: Female
  Weight: 110.2 kg

DRUGS (22)
  1. COREG [Concomitant]
     Active Substance: CARVEDILOL
  2. LANTUS [Concomitant]
     Active Substance: INSULIN GLARGINE
  3. LEVOTHYROXINE (LEVOTHYROXINE) [Concomitant]
     Active Substance: LEVOTHYROXINE
  4. VITAMIN D (ERGOCALCIFEROL) [Concomitant]
     Active Substance: ERGOCALCIFEROL
  5. ZETIA [Concomitant]
     Active Substance: EZETIMIBE
  6. INSULIN (INSULIN PORCINE) [Concomitant]
  7. CELEXA [Concomitant]
     Active Substance: CITALOPRAM HYDROBROMIDE
  8. SEROQUEL [Concomitant]
     Active Substance: QUETIAPINE FUMARATE
  9. JUXTAPID [Suspect]
     Active Substance: LOMITAPIDE MESYLATE
     Indication: TYPE IIA HYPERLIPIDAEMIA
     Route: 048
     Dates: start: 20140217
  10. HUMALOG [Concomitant]
     Active Substance: INSULIN LISPRO
  11. HUMULIN (INSULIN HUMAN, INSULIN HUMAN INJECTION, ISOPHANE) , 70/30 [Concomitant]
  12. NYSTATIN (NYSTATIN) [Concomitant]
     Active Substance: NYSTATIN
  13. VITAMIN D3 [Concomitant]
     Active Substance: CHOLECALCIFEROL
  14. ASPIRIN (ACETYLSALICYLIC ACID) [Concomitant]
     Active Substance: ASPIRIN
  15. CRESTOR [Concomitant]
     Active Substance: ROSUVASTATIN CALCIUM
  16. LISINOPRIL (LISINOPRIL) [Concomitant]
     Active Substance: LISINOPRIL
  17. FISH OIL (FISH OIL) CAPSULE [Concomitant]
  18. VITAMIN E [Concomitant]
     Active Substance: .ALPHA.-TOCOPHEROL
  19. CO Q10 (UBIDECARENONE) [Concomitant]
  20. HUMALOG MIX (INSULIN LISPRO, INSULIN LISPRO PROTAMINE SUSPENSION) [Concomitant]
  21. AMLODIPINE (AMLODIPINE BESILATE) [Concomitant]
  22. METROGEL (METRONIDAZOLE) [Concomitant]

REACTIONS (4)
  - Diarrhoea [None]
  - Gastrointestinal sounds abnormal [None]
  - Vomiting [None]
  - Nausea [None]

NARRATIVE: CASE EVENT DATE: 201402
